FAERS Safety Report 20072584 (Version 1)
Quarter: 2021Q4

REPORT INFORMATION
  Report Type: Spontaneous
  Country: ES (occurrence: ES)
  Receive Date: 20211116
  Receipt Date: 20211116
  Transmission Date: 20220303
  Serious: Yes (Other)
  Sender: FDA-Public Use
  Company Number: None

PATIENT
  Age: 38 Year
  Sex: Female

DRUGS (4)
  1. AIMOVIG [Suspect]
     Active Substance: ERENUMAB-AOOE
     Indication: Migraine
     Dosage: 140 MILLIGRAM, QMO (SOLUTION FOR INJECTION IN A PRE-FILLED PEN, 1 PRE FILLED PEN OF 1ML)
     Route: 058
     Dates: start: 20210604, end: 20210709
  2. IBUPROFEN [Concomitant]
     Active Substance: IBUPROFEN
     Indication: Product used for unknown indication
     Dosage: 600 MILLIGRAM, AS NECESSARY(PRN) (GRANULATE FOR ORAL SOLUTION, COLA-LEMON FLAVOR, 20 SACHETS)
     Route: 048
     Dates: start: 20210629
  3. RELPAX [Concomitant]
     Active Substance: ELETRIPTAN HYDROBROMIDE
     Indication: Product used for unknown indication
     Dosage: 40 MILLIGRAM, AS NECESSARY (PRN) (FILM-COATED TABLETS, 4 TABLETS)
     Route: 048
     Dates: start: 20190912
  4. TOPAMAX [Concomitant]
     Active Substance: TOPIRAMATE
     Indication: Product used for unknown indication
     Dosage: 100 MILLIGRAM, Q12H (AS NECESSARY) (FILMCOATED TABLETS, 60 TABLETS)
     Route: 048
     Dates: start: 20210409

REACTIONS (1)
  - Toxic skin eruption [Recovering/Resolving]

NARRATIVE: CASE EVENT DATE: 20210604
